FAERS Safety Report 13483853 (Version 1)
Quarter: 2017Q2

REPORT INFORMATION
  Report Type: Report from Study
  Country: PL (occurrence: PL)
  Receive Date: 20170425
  Receipt Date: 20170425
  Transmission Date: 20170830
  Serious: Yes (Other)
  Sender: FDA-Public Use
  Company Number: PL-ROCHE-1923069

PATIENT

DRUGS (3)
  1. OMBITASVIR/PARITAPREVIR/RITONAVIR [Interacting]
     Active Substance: OMBITASVIR\PARITAPREVIR\RITONAVIR
     Indication: HEPATITIS C VIRUS TEST POSITIVE
     Route: 065
  2. RIBAVIRIN. [Suspect]
     Active Substance: RIBAVIRIN
     Indication: HEPATITIS C VIRUS TEST POSITIVE
     Route: 065
  3. DASABUVIR [Interacting]
     Active Substance: DASABUVIR
     Indication: HEPATITIS C VIRUS TEST POSITIVE
     Dosage: TWO DIVIDED DOSES
     Route: 065

REACTIONS (11)
  - Asthenia [Unknown]
  - Oedema peripheral [Unknown]
  - Anaemia [Unknown]
  - Diarrhoea [Unknown]
  - Drug interaction [Unknown]
  - Abdominal pain [Unknown]
  - Headache [Unknown]
  - Insomnia [Unknown]
  - Palpitations [Unknown]
  - Renal failure [Unknown]
  - Fatigue [Unknown]
